FAERS Safety Report 17550446 (Version 1)
Quarter: 2020Q1

REPORT INFORMATION
  Report Type: Spontaneous
  Country: US (occurrence: US)
  Receive Date: 20200317
  Receipt Date: 20200317
  Transmission Date: 20200409
  Serious: Yes (Hospitalization)
  Sender: FDA-Public Use
  Company Number: US-LEADING PHARMA LLC-US-2020LEALIT00037

PATIENT
  Age: 38 Year
  Sex: Female

DRUGS (4)
  1. NORMAL SALINE [Interacting]
     Active Substance: SODIUM CHLORIDE
  2. ALBUMIN [Interacting]
     Active Substance: ALBUMIN HUMAN
  3. FUROSEMIDE TABLETS USP [Suspect]
     Active Substance: FUROSEMIDE
  4. HYPERTONIC SALINE SOLUTION [Interacting]
     Active Substance: SODIUM CHLORIDE

REACTIONS (5)
  - Haematemesis [Unknown]
  - Dizziness [Unknown]
  - Hyponatraemia [Recovering/Resolving]
  - Nausea [Unknown]
  - Hypovolaemia [Recovering/Resolving]
